FAERS Safety Report 6622050-7 (Version None)
Quarter: 2010Q1

REPORT INFORMATION
  Report Type: 
  Country: None (occurrence: None)
  Receive Date: 20100223
  Receipt Date: 20091022
  Transmission Date: 20100710
  Serious: No
  Sender: FDA-Public Use
  Company Number: 8053668

PATIENT
  Age: 19 Year
  Sex: Female

DRUGS (7)
  1. CERTOLIZUMAB PEGOL (UCB, INC) [Suspect]
     Indication: CROHN'S DISEASE
     Dosage: (SUBCUTANEOUS)
     Route: 058
     Dates: start: 20091016
  2. MERCAPTOPURINE [Concomitant]
  3. ENTOCORT EC [Concomitant]
  4. COMPAZINE [Concomitant]
  5. TYLENOL-500 [Concomitant]
  6. VICODIN [Concomitant]
  7. PRILOSEC [Concomitant]

REACTIONS (2)
  - INFLUENZA LIKE ILLNESS [None]
  - OROPHARYNGEAL PAIN [None]
